FAERS Safety Report 24310301 (Version 1)
Quarter: 2024Q3

REPORT INFORMATION
  Report Type: Spontaneous
  Country: TW (occurrence: TW)
  Receive Date: 20240912
  Receipt Date: 20240912
  Transmission Date: 20241017
  Serious: Yes (Life-Threatening, Hospitalization, Other)
  Sender: BOEHRINGER INGELHEIM
  Company Number: TW-ASTELLAS-2024-AER-004263

PATIENT
  Age: 72 Year
  Sex: Male
  Weight: 66 kg

DRUGS (2)
  1. TAMSULOSIN HYDROCHLORIDE [Suspect]
     Active Substance: TAMSULOSIN HYDROCHLORIDE
     Indication: Product used for unknown indication
     Route: 048
     Dates: start: 20240329
  2. EMPAGLIFLOZIN\METFORMIN HYDROCHLORIDE [Suspect]
     Active Substance: EMPAGLIFLOZIN\METFORMIN HYDROCHLORIDE
     Indication: Product used for unknown indication
     Route: 048
     Dates: start: 20240329

REACTIONS (3)
  - Urinary tract infection [Recovered/Resolved]
  - Septic shock [Recovered/Resolved]
  - Respiratory failure [Unknown]

NARRATIVE: CASE EVENT DATE: 20240801
